FAERS Safety Report 6357940-6 (Version None)
Quarter: 2009Q3

REPORT INFORMATION
  Report Type: 
  Country: None (occurrence: None)
  Receive Date: 20090911
  Receipt Date: 20090825
  Transmission Date: 20100115
  Serious: Yes (Death)
  Sender: FDA-Public Use
  Company Number: DSA_41585_2009

PATIENT
  Sex: Female

DRUGS (3)
  1. DILTIAZEM [Suspect]
     Indication: HYPERTENSION
     Dosage: (DF ORAL)
     Route: 048
     Dates: start: 20090727, end: 20090812
  2. XALATAN [Suspect]
     Indication: GLAUCOMA
     Dosage: (DF OPHTHALMIC)
     Route: 047
     Dates: start: 20090406, end: 20090812
  3. NORVASC [Suspect]
     Indication: HYPERTENSION
     Dosage: (DF ORAL)
     Route: 048
     Dates: start: 20080910, end: 20090812

REACTIONS (1)
  - DEATH [None]
